FAERS Safety Report 21999761 (Version 1)
Quarter: 2023Q1

REPORT INFORMATION
  Report Type: Spontaneous
  Country: PT (occurrence: PT)
  Receive Date: 20230216
  Receipt Date: 20230216
  Transmission Date: 20230418
  Serious: Yes (Hospitalization, Other)
  Sender: FDA-Public Use
  Company Number: PT-009507513-2302PRT004227

PATIENT
  Age: 75 Year
  Sex: Female
  Weight: 105 kg

DRUGS (10)
  1. SUGAMMADEX SODIUM [Suspect]
     Active Substance: SUGAMMADEX SODIUM
     Dosage: 200 MILLIGRAM
  2. SUGAMMADEX SODIUM [Suspect]
     Active Substance: SUGAMMADEX SODIUM
     Dosage: 200 MILLIGRAM
  3. ROCURONIUM BROMIDE [Suspect]
     Active Substance: ROCURONIUM BROMIDE
     Indication: Anaesthesia
     Dosage: 13ML/H (2MG/ML) WAS MAINTAINED
  4. PROPOFOL [Concomitant]
     Active Substance: PROPOFOL
     Indication: Anaesthesia
  5. FENTANYL [Concomitant]
     Active Substance: FENTANYL
     Indication: Anaesthesia
  6. DESFLURANE [Concomitant]
     Active Substance: DESFLURANE
     Indication: Anaesthesia
  7. ACETAMINOPHEN [Concomitant]
     Active Substance: ACETAMINOPHEN
     Indication: Postoperative analgesia
     Dosage: 1000 MILLIGRAM
  8. PARECOXIB [Concomitant]
     Active Substance: PARECOXIB
     Indication: Postoperative analgesia
     Dosage: 40 MILLIGRAM
  9. METAMIZOL [Concomitant]
     Active Substance: METAMIZOLE SODIUM
     Indication: Postoperative analgesia
     Dosage: 2000 MILLIGRAM
  10. TRAMADOL [Concomitant]
     Active Substance: TRAMADOL
     Indication: Postoperative analgesia
     Dosage: 100 MILLIGRAM

REACTIONS (3)
  - Neuromuscular block prolonged [Recovering/Resolving]
  - Respiratory failure [Recovering/Resolving]
  - Unresponsive to stimuli [Unknown]
